FAERS Safety Report 16599034 (Version 4)
Quarter: 2020Q2

REPORT INFORMATION
  Report Type: Spontaneous
  Country: US (occurrence: US)
  Receive Date: 20190719
  Receipt Date: 20200417
  Transmission Date: 20200713
  Serious: No
  Sender: FDA-Public Use
  Company Number: PHEH2019US029779

PATIENT
  Age: 63 Year
  Sex: Female

DRUGS (2)
  1. TAFINLAR [Suspect]
     Active Substance: DABRAFENIB MESYLATE
     Indication: MALIGNANT MELANOMA
     Dosage: 150 MG, Q12H
     Route: 048
     Dates: start: 201906
  2. MEKINIST [Suspect]
     Active Substance: TRAMETINIB DIMETHYL SULFOXIDE
     Indication: MALIGNANT MELANOMA
     Dosage: 2 MG, QD
     Route: 048
     Dates: start: 201906

REACTIONS (8)
  - Rash [Unknown]
  - Pyrexia [Unknown]
  - Nausea [Unknown]
  - Cough [Unknown]
  - Headache [Unknown]
  - Stomatitis [Unknown]
  - Chest discomfort [Unknown]
  - Insomnia [Unknown]

NARRATIVE: CASE EVENT DATE: 202003
